FAERS Safety Report 15461658 (Version 1)
Quarter: 2018Q4

REPORT INFORMATION
  Report Type: Report from Study
  Country: BR (occurrence: BR)
  Receive Date: 20181003
  Receipt Date: 20181003
  Transmission Date: 20190204
  Serious: Yes (Hospitalization)
  Sender: FDA-Public Use
  Company Number: PHHY2018BR113004

PATIENT
  Sex: Female

DRUGS (1)
  1. AFINITOR [Suspect]
     Active Substance: EVEROLIMUS
     Indication: PRODUCT USED FOR UNKNOWN INDICATION
     Route: 065
     Dates: start: 20180801

REACTIONS (5)
  - Aphthous ulcer [Unknown]
  - Malaise [Unknown]
  - Muscle spasms [Unknown]
  - Skin atrophy [Unknown]
  - Thrombosis [Unknown]

NARRATIVE: CASE EVENT DATE: 20180924
